FAERS Safety Report 7924574-9 (Version None)
Quarter: 2011Q4

REPORT INFORMATION
  Report Type: 
  Country: None (occurrence: None)
  Receive Date: 20111117
  Receipt Date: 20110324
  Transmission Date: 20120403
  Serious: No
  Sender: FDA-Public Use
  Company Number: US-AMGEN-USASP2011016073

PATIENT
  Age: 48 Year
  Sex: Female

DRUGS (1)
  1. ENBREL [Suspect]
     Indication: PSORIASIS
     Dates: start: 20020101

REACTIONS (11)
  - PNEUMONIA [None]
  - INJECTION SITE HAEMATOMA [None]
  - BREAST TENDERNESS [None]
  - FOOT DEFORMITY [None]
  - PSORIASIS [None]
  - INJECTION SITE PAIN [None]
  - ABDOMINAL DISTENSION [None]
  - HYPERAESTHESIA [None]
  - SENSATION OF HEAVINESS [None]
  - UPPER RESPIRATORY TRACT INFECTION [None]
  - CYSTITIS [None]
